FAERS Safety Report 7631140-1 (Version None)
Quarter: 2011Q3

REPORT INFORMATION
  Report Type: 
  Country: None (occurrence: None)
  Receive Date: 20110725
  Receipt Date: 20110718
  Transmission Date: 20111222
  Serious: No
  Sender: FDA-Public Use
  Company Number: US-JNJFOC-20110708583

PATIENT
  Sex: Male
  Weight: 151.05 kg

DRUGS (2)
  1. FENTANYL [Suspect]
     Route: 062
     Dates: start: 20110716
  2. FENTANYL [Suspect]
     Indication: PAIN IN EXTREMITY
     Route: 062
     Dates: start: 20110201, end: 20110716

REACTIONS (3)
  - PRODUCT QUALITY ISSUE [None]
  - WRONG TECHNIQUE IN DRUG USAGE PROCESS [None]
  - DRUG ADMINISTERED AT INAPPROPRIATE SITE [None]
